FAERS Safety Report 18785619 (Version 11)
Quarter: 2024Q4

REPORT INFORMATION
  Report Type: Report from Study
  Country: US (occurrence: US)
  Receive Date: 20210125
  Receipt Date: 20241126
  Transmission Date: 20250114
  Serious: Yes (Other)
  Sender: TAKEDA
  Company Number: US-TAKEDA-2021TUS003202

PATIENT
  Age: 13 Year
  Sex: Male

DRUGS (6)
  1. VONICOG ALFA [Suspect]
     Active Substance: VONICOG ALFA
     Indication: Haemorrhage
     Dosage: 4122 INTERNATIONAL UNIT
  2. VONICOG ALFA [Suspect]
     Active Substance: VONICOG ALFA
     Dosage: 5088 INTERNATIONAL UNIT
  3. VONICOG ALFA [Suspect]
     Active Substance: VONICOG ALFA
     Dosage: 5088 INTERNATIONAL UNIT
  4. VONICOG ALFA [Suspect]
     Active Substance: VONICOG ALFA
     Dosage: 5316 INTERNATIONAL UNIT
  5. VONICOG ALFA [Suspect]
     Active Substance: VONICOG ALFA
     Dosage: 5316 INTERNATIONAL UNIT
  6. VONICOG ALFA [Suspect]
     Active Substance: VONICOG ALFA
     Dosage: 5796 INTERNATIONAL UNIT

REACTIONS (1)
  - Epistaxis [Recovered/Resolved]

NARRATIVE: CASE EVENT DATE: 20210519
